FAERS Safety Report 6417361-4 (Version None)
Quarter: 2009Q4

REPORT INFORMATION
  Report Type: 
  Country: None (occurrence: None)
  Receive Date: 20091028
  Receipt Date: 20091015
  Transmission Date: 20100525
  Serious: Yes (Hospitalization, Other)
  Sender: FDA-Public Use
  Company Number: AU-PFIZER INC-2009283977

PATIENT
  Age: 55 Year

DRUGS (3)
  1. CHAMPIX [Suspect]
     Dosage: UNK
     Dates: start: 20090923, end: 20091001
  2. MOCLOBEMIDE [Concomitant]
     Indication: MENTAL DISORDER
  3. CYMBALTA [Concomitant]
     Indication: MENTAL DISORDER

REACTIONS (7)
  - ABNORMAL DREAMS [None]
  - COMA [None]
  - DEPRESSION [None]
  - DRY MOUTH [None]
  - HALLUCINATION [None]
  - INSOMNIA [None]
  - PSYCHOTIC DISORDER [None]
